FAERS Safety Report 9108961 (Version 2)
Quarter: 2013Q1

REPORT INFORMATION
  Report Type: Spontaneous
  Country: FR (occurrence: FR)
  Receive Date: 20130222
  Receipt Date: 20130311
  Transmission Date: 20140127
  Serious: Yes (Hospitalization)
  Sender: FDA-Public Use
  Company Number: FR-ELI_LILLY_AND_COMPANY-FR201302003541

PATIENT
  Age: 41 Year
  Sex: Female

DRUGS (2)
  1. GEMZAR [Suspect]
     Indication: BREAST CANCER
     Dosage: 1600 MG, UNKNOWN
     Route: 042
     Dates: start: 20121211
  2. METHYLPREDNISOLONE MERCK [Concomitant]
     Indication: PREMEDICATION

REACTIONS (2)
  - Infusion related reaction [Recovered/Resolved]
  - Sense of oppression [Recovered/Resolved]
